FAERS Safety Report 12885553 (Version 1)
Quarter: 2016Q4

REPORT INFORMATION
  Report Type: Spontaneous
  Country: BR (occurrence: BR)
  Receive Date: 20161026
  Receipt Date: 20161026
  Transmission Date: 20170207
  Serious: Yes (Other)
  Sender: FDA-Public Use
  Company Number: BR-GLAXOSMITHKLINE-BR2016GSK155577

PATIENT
  Age: 67 Year
  Sex: Male

DRUGS (16)
  1. RELVAR ELLIPTA [Suspect]
     Active Substance: FLUTICASONE FUROATE\VILANTEROL TRIFENATATE
     Indication: PRODUCT USED FOR UNKNOWN INDICATION
     Dosage: UNK
     Dates: end: 201608
  2. LOSARTAN. [Concomitant]
     Active Substance: LOSARTAN
  3. VERAPAMIL [Concomitant]
     Active Substance: VERAPAMIL HYDROCHLORIDE
  4. GLIFAGE [Concomitant]
     Active Substance: METFORMIN HYDROCHLORIDE
  5. ALENDRONATE SODIUM. [Concomitant]
     Active Substance: ALENDRONATE SODIUM
     Indication: OSTEOARTHRITIS
  6. ORLISTAT [Concomitant]
     Active Substance: ORLISTAT
  7. ATORVASTATIN [Concomitant]
     Active Substance: ATORVASTATIN
  8. PRESSAT [Concomitant]
     Active Substance: AMLODIPINE BESYLATE
  9. CALCIUM [Concomitant]
     Active Substance: CALCIUM
  10. CLENIL [Suspect]
     Active Substance: BECLOMETHASONE DIPROPIONATE
     Indication: PRODUCT USED FOR UNKNOWN INDICATION
     Dosage: UNK
  11. CIPROFIBRATE [Concomitant]
     Active Substance: CIPROFIBRATE
  12. RELVAR ELLIPTA [Suspect]
     Active Substance: FLUTICASONE FUROATE\VILANTEROL TRIFENATATE
     Dosage: UNK
     Dates: start: 20161018
  13. CONDRESS [Concomitant]
     Indication: OSTEOARTHRITIS
  14. ACETYLSALICYLIC ACID [Concomitant]
     Active Substance: ASPIRIN
  15. PURAN [Concomitant]
     Active Substance: LEVOTHYROXINE SODIUM
  16. LIPLESS [Concomitant]
     Active Substance: CIPROFIBRATE

REACTIONS (3)
  - Asthmatic crisis [Unknown]
  - Pulmonary mass [Unknown]
  - Pneumonia [Unknown]

NARRATIVE: CASE EVENT DATE: 201602
